FAERS Safety Report 14970073 (Version 1)
Quarter: 2018Q2

REPORT INFORMATION
  Report Type: Spontaneous
  Country: US (occurrence: US)
  Receive Date: 20180530
  Receipt Date: 20180530
  Transmission Date: 20180711
  Serious: No
  Sender: FDA-Public Use
  Company Number: US-KADMON PHARMACEUTICALS, LLC-KAD201708-000918

PATIENT
  Age: 63 Year
  Sex: Female

DRUGS (3)
  1. TACROLIMUS. [Concomitant]
     Active Substance: TACROLIMUS
  2. PEG-INTERFERON ALFA-2A [Suspect]
     Active Substance: PEGINTERFERON ALFA-2A
     Dosage: PRE-FILLED SYRINGE
     Dates: start: 20120921
  3. RIBASPHERE [Suspect]
     Active Substance: RIBAVIRIN
     Dates: start: 20120921

REACTIONS (2)
  - Nasopharyngitis [Unknown]
  - Cough [Unknown]
